FAERS Safety Report 18784236 (Version 1)
Quarter: 2021Q1

REPORT INFORMATION
  Report Type: Spontaneous
  Country: US (occurrence: US)
  Receive Date: 20210126
  Receipt Date: 20210126
  Transmission Date: 20210419
  Serious: No
  Sender: FDA-Public Use
  Company Number: US-SA-2021SA022163

PATIENT
  Age: 9 Year
  Sex: Female

DRUGS (4)
  1. TYLENOL [Concomitant]
     Active Substance: ACETAMINOPHEN
  2. TACROLIMUS. [Concomitant]
     Active Substance: TACROLIMUS
  3. LACTOSE [Concomitant]
     Active Substance: LACTOSE
  4. DUPIXENT [Suspect]
     Active Substance: DUPILUMAB
     Indication: DERMATITIS ATOPIC
     Dosage: 200 MG, QOW
     Route: 058
     Dates: start: 20200909

REACTIONS (2)
  - Product use issue [Unknown]
  - Injection site urticaria [Unknown]
